FAERS Safety Report 8060979-6 (Version None)
Quarter: 2012Q1

REPORT INFORMATION
  Report Type: 
  Country: None (occurrence: None)
  Receive Date: 20120120
  Receipt Date: 20120112
  Transmission Date: 20120608
  Serious: Yes (Disabling)
  Sender: FDA-Public Use
  Company Number: US-MERCK-1201USA01932

PATIENT
  Age: 55 Year
  Sex: Male
  Weight: 103 kg

DRUGS (7)
  1. GLIPIZIDE [Concomitant]
     Indication: DIABETES MELLITUS
     Route: 048
  2. METFORMIN [Concomitant]
     Indication: DIABETES MELLITUS
     Route: 048
  3. LISINOPRIL [Concomitant]
     Indication: HYPERTENSION
     Route: 048
  4. NORVASC [Concomitant]
     Indication: HYPERTENSION
     Route: 048
  5. JANUVIA [Suspect]
     Indication: DIABETES MELLITUS
     Route: 048
     Dates: start: 20111019, end: 20111118
  6. PRAVASTATIN SODIUM [Concomitant]
     Indication: LIPIDS INCREASED
     Route: 048
  7. LISINOPRIL [Concomitant]
     Indication: DIABETES MELLITUS
     Route: 048

REACTIONS (1)
  - TEMPORAL ARTERITIS [None]
